FAERS Safety Report 8929005 (Version 1)
Quarter: 2012Q4

REPORT INFORMATION
  Report Type: 
  Country: RS (occurrence: RS)
  Receive Date: 20121127
  Receipt Date: 20121127
  Transmission Date: 20130627
  Serious: Yes (Other)
  Sender: FDA-Public Use
  Company Number: RS-MYLANLABS-2012S1023781

PATIENT
  Age: 30 Year
  Sex: Female

DRUGS (6)
  1. METRONIDAZOLE [Suspect]
     Indication: CLOSTRIDIAL INFECTION
     Route: 065
  2. TACROLIMUS [Interacting]
     Indication: IMMUNOSUPPRESSANT DRUG THERAPY
     Route: 065
  3. MYCOPHENOLATE MOFETIL [Concomitant]
     Indication: IMMUNOSUPPRESSANT DRUG THERAPY
     Route: 065
  4. PREDNISONE [Concomitant]
     Indication: IMMUNOSUPPRESSANT DRUG THERAPY
     Dosage: 20mg daily
     Route: 065
  5. CARVEDILOL [Concomitant]
     Route: 065
  6. METHYLDOPA [Concomitant]
     Route: 065

REACTIONS (6)
  - Drug interaction [Recovering/Resolving]
  - Drug level increased [Recovered/Resolved]
  - Metabolic acidosis [Recovering/Resolving]
  - Hypomagnesaemia [Recovered/Resolved]
  - Nephropathy toxic [Recovering/Resolving]
  - Blood creatinine increased [Recovered/Resolved]
